FAERS Safety Report 5738141-9 (Version None)
Quarter: 2008Q2

REPORT INFORMATION
  Report Type: 
  Country: None (occurrence: None)
  Receive Date: 20080514
  Receipt Date: 20080502
  Transmission Date: 20081010
  Serious: Yes (Other)
  Sender: FDA-Public Use
  Company Number: US-PFIZER INC-2008039765

PATIENT
  Sex: Male
  Weight: 99.8 kg

DRUGS (1)
  1. CHANTIX [Suspect]
     Indication: SMOKING CESSATION THERAPY
     Dates: start: 20080429, end: 20080502

REACTIONS (3)
  - ERYTHEMA [None]
  - FEELING ABNORMAL [None]
  - SWELLING FACE [None]
